FAERS Safety Report 5142557-1 (Version None)
Quarter: 2006Q4

REPORT INFORMATION
  Report Type: 
  Country: None (occurrence: None)
  Receive Date: 20061027
  Receipt Date: 20061014
  Transmission Date: 20070319
  Serious: Yes (Other)
  Sender: FDA-Public Use
  Company Number: 2006127170

PATIENT
  Age: 59 Year
  Sex: Male
  Weight: 81.6475 kg

DRUGS (5)
  1. CHANTIX [Suspect]
     Indication: SMOKING CESSATION THERAPY
     Dosage: 2 MG (1 MG, 2 IN 1 D)
     Dates: start: 20060929
  2. LOTREL [Concomitant]
  3. ZOCOR [Concomitant]
  4. FLUNISOLIDE [Concomitant]
  5. ALAVERT [Concomitant]

REACTIONS (4)
  - EYE HAEMORRHAGE [None]
  - RETINAL DETACHMENT [None]
  - RETINAL TEAR [None]
  - VITREOUS FLOATERS [None]
